FAERS Safety Report 14652278 (Version 3)
Quarter: 2018Q2

REPORT INFORMATION
  Report Type: Report from Study
  Country: CZ (occurrence: CZ)
  Receive Date: 20180318
  Receipt Date: 20180423
  Transmission Date: 20180711
  Serious: Yes (Hospitalization, Other)
  Sender: FDA-Public Use
  Company Number: PHHO2018CZ003397

PATIENT
  Age: 7 Year
  Sex: Male
  Weight: 19.8 kg

DRUGS (5)
  1. TRAMETINIB [Suspect]
     Active Substance: TRAMETINIB
     Indication: EMBRYONAL RHABDOMYOSARCOMA
     Dosage: 0.5 MG, QD
     Route: 048
     Dates: start: 20180126
  2. TRAMETINIB [Suspect]
     Active Substance: TRAMETINIB
     Dosage: 0.5 MG, QD
     Route: 048
     Dates: end: 20180308
  3. TRAMETINIB [Suspect]
     Active Substance: TRAMETINIB
     Dosage: 0.5 MG, QD
     Route: 048
     Dates: start: 20180402
  4. TRAMETINIB [Suspect]
     Active Substance: TRAMETINIB
     Dosage: 0.5 MG, QD
     Route: 048
     Dates: start: 20180323, end: 20180401
  5. HERPESIN [Concomitant]
     Active Substance: ACYCLOVIR
     Indication: PROPHYLAXIS
     Dosage: 3 DF, UNK
     Route: 065
     Dates: start: 20180310, end: 20180319

REACTIONS (15)
  - Febrile neutropenia [Recovered/Resolved]
  - White blood cell count decreased [Unknown]
  - Hypogammaglobulinaemia [Recovered/Resolved]
  - Hypogammaglobulinaemia [Recovered/Resolved]
  - Epistaxis [Recovered/Resolved]
  - Blood immunoglobulin G decreased [Unknown]
  - Febrile neutropenia [Recovered/Resolved]
  - Febrile neutropenia [Recovered/Resolved]
  - Vomiting [Recovered/Resolved]
  - Mucosal inflammation [Recovered/Resolved]
  - Device related infection [Unknown]
  - Polymerase chain reaction positive [Unknown]
  - C-reactive protein increased [Unknown]
  - Hypogammaglobulinaemia [Recovered/Resolved]
  - Bacterial disease carrier [Unknown]

NARRATIVE: CASE EVENT DATE: 20180206
